FAERS Safety Report 6147469-2 (Version None)
Quarter: 2009Q2

REPORT INFORMATION
  Report Type: 
  Country: None (occurrence: None)
  Receive Date: 20090408
  Receipt Date: 20090330
  Transmission Date: 20091009
  Serious: Yes (Hospitalization, Other)
  Sender: FDA-Public Use
  Company Number: US-CELGENEUS-163-C5013-05120027

PATIENT
  Sex: Female
  Weight: 73.4 kg

DRUGS (3)
  1. CC-5013 [Suspect]
     Indication: NON-HODGKIN'S LYMPHOMA
     Route: 048
     Dates: start: 20050816, end: 20051122
  2. CC-5013 [Suspect]
     Route: 048
     Dates: start: 20051206, end: 20051211
  3. RITUXIMAB [Concomitant]
     Indication: DRUG USE FOR UNKNOWN INDICATION
     Route: 065

REACTIONS (5)
  - ABDOMINAL PAIN UPPER [None]
  - ANAEMIA [None]
  - COOMBS POSITIVE HAEMOLYTIC ANAEMIA [None]
  - MALAISE [None]
  - PYREXIA [None]
